FAERS Safety Report 22040630 (Version 2)
Quarter: 2023Q2

REPORT INFORMATION
  Report Type: Spontaneous
  Country: CA (occurrence: CA)
  Receive Date: 20230227
  Receipt Date: 20230517
  Transmission Date: 20230721
  Serious: Yes (Hospitalization, Other)
  Sender: FDA-Public Use
  Company Number: CA-PFIZER INC-202200962211

PATIENT
  Age: 45 Year
  Sex: Female

DRUGS (5)
  1. RUXIENCE [Suspect]
     Active Substance: RITUXIMAB-PVVR
     Indication: Rheumatoid arthritis
     Dosage: 1000 MG, 1000 MG DAY 1 AND 15
     Route: 042
     Dates: start: 20220630, end: 20220713
  2. RUXIENCE [Suspect]
     Active Substance: RITUXIMAB-PVVR
     Dosage: 1000 MG, 1000 MG DAY 1 AND 15
     Route: 042
     Dates: start: 20220713
  3. RUXIENCE [Suspect]
     Active Substance: RITUXIMAB-PVVR
     Dosage: 1000 MG, 1000 MG DAY 1 AND 15
     Route: 042
     Dates: start: 20230206
  4. RUXIENCE [Suspect]
     Active Substance: RITUXIMAB-PVVR
     Dosage: 1000 MG, 1000 MG DAY 1 AND 15
     Route: 042
     Dates: start: 20230206, end: 20230221
  5. RUXIENCE [Suspect]
     Active Substance: RITUXIMAB-PVVR
     Dosage: 1000 MG, 1000 MG DAY 1 AND 15
     Route: 042
     Dates: start: 20230221

REACTIONS (9)
  - Pruritus [Unknown]
  - Erythema [Unknown]
  - Nausea [Unknown]
  - Hypotension [Unknown]
  - Drug ineffective [Unknown]
  - Product use issue [Unknown]
  - Off label use [Unknown]
  - Heart rate irregular [Not Recovered/Not Resolved]
  - Drug intolerance [Unknown]

NARRATIVE: CASE EVENT DATE: 20220713
